FAERS Safety Report 8926129 (Version 2)
Quarter: 2013Q1

REPORT INFORMATION
  Report Type: Spontaneous
  Country: US (occurrence: US)
  Receive Date: 20121126
  Receipt Date: 20130110
  Transmission Date: 20140127
  Serious: Yes (Hospitalization, Other)
  Sender: FDA-Public Use
  Company Number: US-JNJFOC-20121108211

PATIENT
  Age: 75 None
  Sex: Female
  Weight: 69.4 kg

DRUGS (9)
  1. UNSPECIFIED FENTANYL TRANSDERMAL SYSTEM [Suspect]
     Indication: FIBROMYALGIA
     Route: 062
     Dates: start: 2002, end: 2009
  2. SANDOZ FENTANYL TRANSDERMAL SYSTEM [Suspect]
     Indication: FIBROMYALGIA
     Dosage: NDC-0781-7243-55
     Route: 062
     Dates: start: 2009
  3. COUMADIN [Concomitant]
     Indication: PRODUCT USED FOR UNKNOWN INDICATION
     Route: 048
     Dates: start: 2007
  4. DIOVAN [Concomitant]
     Indication: HYPERTENSION
     Route: 048
  5. DIOVAN [Concomitant]
     Indication: HYPERTENSION
     Route: 048
  6. DILTIAZEM [Concomitant]
     Indication: HYPERTENSION
     Route: 048
  7. LORAZEPAM [Concomitant]
     Indication: ANXIETY
     Route: 048
  8. VITAMIN D [Concomitant]
     Route: 065
  9. SPIRIVA [Concomitant]
     Route: 065

REACTIONS (7)
  - Chronic obstructive pulmonary disease [Not Recovered/Not Resolved]
  - Heart rate decreased [Recovered/Resolved]
  - Disorientation [Recovering/Resolving]
  - Withdrawal syndrome [Recovering/Resolving]
  - Incorrect drug administration duration [Recovered/Resolved]
  - Product quality issue [Recovered/Resolved]
  - Wrong technique in drug usage process [Recovered/Resolved]
